FAERS Safety Report 10498304 (Version 2)
Quarter: 2014Q4

REPORT INFORMATION
  Report Type: Spontaneous
  Country: US (occurrence: US)
  Receive Date: 20141006
  Receipt Date: 20141104
  Transmission Date: 20150528
  Serious: Yes (Hospitalization)
  Sender: FDA-Public Use
  Company Number: US-TEVA-512488USA

PATIENT
  Age: 48 Year
  Sex: Female

DRUGS (29)
  1. PLAQUENIL [Concomitant]
     Active Substance: HYDROXYCHLOROQUINE SULFATE
     Dates: start: 20140325
  2. SUCRALFATE. [Concomitant]
     Active Substance: SUCRALFATE
  3. HYDROCODONE/IBUPROFEN [Concomitant]
     Active Substance: HYDROCODONE\IBUPROFEN
     Dosage: 7.5/200
  4. MODAFINIL. [Concomitant]
     Active Substance: MODAFINIL
  5. ASPIRIN. [Concomitant]
     Active Substance: ASPIRIN
  6. HYDROXYZINE [Concomitant]
     Active Substance: HYDROXYZINE\HYDROXYZINE HYDROCHLORIDE
  7. COPAXONE [Suspect]
     Active Substance: GLATIRAMER ACETATE
     Route: 058
     Dates: start: 201409
  8. TOBRAMYCIN AND DEXAMETHASONE [Concomitant]
     Active Substance: DEXAMETHASONE\TOBRAMYCIN
     Route: 065
     Dates: start: 20140325
  9. BACLOFEN. [Concomitant]
     Active Substance: BACLOFEN
  10. OLANZAPINE. [Concomitant]
     Active Substance: OLANZAPINE
  11. TRAZODONE [Concomitant]
     Active Substance: TRAZODONE HYDROCHLORIDE
  12. ESCITALOPRAM [Concomitant]
     Active Substance: ESCITALOPRAM OXALATE
  13. LOSARTAN [Concomitant]
     Active Substance: LOSARTAN
     Dates: start: 20140417
  14. PREDNISONE. [Concomitant]
     Active Substance: PREDNISONE
  15. DIAZEPAM. [Concomitant]
     Active Substance: DIAZEPAM
  16. OMEPRAZOLE. [Concomitant]
     Active Substance: OMEPRAZOLE
  17. COPAXONE [Suspect]
     Active Substance: GLATIRAMER ACETATE
     Indication: MULTIPLE SCLEROSIS
     Route: 058
     Dates: start: 20140305, end: 20140823
  18. FAMOTIDINE. [Concomitant]
     Active Substance: FAMOTIDINE
  19. POTASSIUM CL ER [Concomitant]
  20. ONDANSETRON ODT [Concomitant]
     Active Substance: ONDANSETRON
     Dosage: 4 AND 8 MILLIGRAM
  21. SUMATRIPTAN. [Concomitant]
     Active Substance: SUMATRIPTAN
  22. TRIAMCINOLONE [Concomitant]
     Active Substance: TRIAMCINOLONE
  23. VIIBRYD [Concomitant]
     Active Substance: VILAZODONE HYDROCHLORIDE
  24. DEPAKOTE [Concomitant]
     Active Substance: DIVALPROEX SODIUM
  25. CHANTIX [Concomitant]
     Active Substance: VARENICLINE TARTRATE
     Route: 065
  26. SIMVASTATIN. [Concomitant]
     Active Substance: SIMVASTATIN
  27. HYDROCHLOROTHIAZIDE. [Concomitant]
     Active Substance: HYDROCHLOROTHIAZIDE
     Dosage: EVERY MORNING
  28. PROVIGIL [Concomitant]
     Active Substance: MODAFINIL
  29. GABAPENTIN. [Concomitant]
     Active Substance: GABAPENTIN

REACTIONS (5)
  - Injury [Recovering/Resolving]
  - Bipolar disorder [Recovering/Resolving]
  - Victim of crime [Recovering/Resolving]
  - Depression [Recovering/Resolving]
  - Weight decreased [Recovering/Resolving]

NARRATIVE: CASE EVENT DATE: 201408
